FAERS Safety Report 6404762-3 (Version None)
Quarter: 2009Q4

REPORT INFORMATION
  Report Type: 
  Country: None (occurrence: None)
  Receive Date: 20091016
  Receipt Date: 20091007
  Transmission Date: 20100525
  Serious: Yes (Hospitalization, Disabling, Other)
  Sender: FDA-Public Use
  Company Number: US-ROCHE-394777

PATIENT
  Sex: Male
  Weight: 133.8 kg

DRUGS (1)
  1. ACCUTANE [Suspect]
     Route: 048
     Dates: start: 20000215, end: 20010101

REACTIONS (21)
  - ABDOMINAL PAIN [None]
  - ANAEMIA [None]
  - ANXIETY [None]
  - BLOOD CHOLESTEROL INCREASED [None]
  - COLITIS [None]
  - COLITIS ULCERATIVE [None]
  - DEPRESSION [None]
  - DYSPEPSIA [None]
  - FATIGUE [None]
  - GASTRIC DISORDER [None]
  - GASTROINTESTINAL DISORDER [None]
  - HEADACHE [None]
  - ILL-DEFINED DISORDER [None]
  - INFLAMMATORY BOWEL DISEASE [None]
  - INTESTINAL HAEMORRHAGE [None]
  - IRRITABLE BOWEL SYNDROME [None]
  - PANIC ATTACK [None]
  - PHOTOPHOBIA [None]
  - RECTAL HAEMORRHAGE [None]
  - SUICIDAL IDEATION [None]
  - VISION BLURRED [None]
